FAERS Safety Report 13003097 (Version 1)
Quarter: 2016Q4

REPORT INFORMATION
  Report Type: Spontaneous
  Country: US (occurrence: US)
  Receive Date: 20161202
  Receipt Date: 20161202
  Transmission Date: 20170207
  Serious: Yes (Life-Threatening)
  Sender: FDA-Public Use
  Company Number: None

PATIENT
  Age: 49 Year
  Sex: Male
  Weight: 129.7 kg

DRUGS (4)
  1. AMPICILLIN [Suspect]
     Active Substance: AMPICILLIN
     Indication: AORTIC VALVE REPLACEMENT
     Route: 042
     Dates: start: 20160805, end: 20160807
  2. VANCOMYCIN [Suspect]
     Active Substance: VANCOMYCIN
     Indication: AORTIC VALVE REPLACEMENT
     Route: 042
     Dates: start: 20160719, end: 20160805
  3. AMPICILLIN [Suspect]
     Active Substance: AMPICILLIN
     Indication: VASCULAR OPERATION
     Route: 042
     Dates: start: 20160805, end: 20160807
  4. VANCOMYCIN [Suspect]
     Active Substance: VANCOMYCIN
     Indication: VASCULAR OPERATION
     Route: 042
     Dates: start: 20160719, end: 20160805

REACTIONS (1)
  - Thrombocytopenia [None]

NARRATIVE: CASE EVENT DATE: 20160807
